FAERS Safety Report 23933498 (Version 1)
Quarter: 2024Q2

REPORT INFORMATION
  Report Type: Spontaneous
  Country: BR (occurrence: BR)
  Receive Date: 20240603
  Receipt Date: 20240603
  Transmission Date: 20240715
  Serious: Yes (Other)
  Sender: FDA-Public Use
  Company Number: BR-Merck Healthcare KGaA-2024028809

PATIENT
  Age: 51 Year
  Sex: Male

DRUGS (1)
  1. METFORMIN HYDROCHLORIDE [Suspect]
     Active Substance: METFORMIN HYDROCHLORIDE
     Indication: Type 2 diabetes mellitus
     Dosage: 2 TABLETS AT LUNCH, 2 TABLETS AT NIGHT DURING DINNER.?MANUFACTURER DATE: NOV-2023
     Route: 048
     Dates: start: 2010

REACTIONS (3)
  - Anal fistula [Not Recovered/Not Resolved]
  - Haemorrhoids [Not Recovered/Not Resolved]
  - Male sexual dysfunction [Unknown]

NARRATIVE: CASE EVENT DATE: 20100101
